FAERS Safety Report 8902166 (Version 2)
Quarter: 2012Q4

REPORT INFORMATION
  Report Type: Report from Study
  Country: BE (occurrence: BE)
  Receive Date: 20121112
  Receipt Date: 20121211
  Transmission Date: 20130627
  Serious: Yes (Hospitalization)
  Sender: FDA-Public Use
  Company Number: BE-AMGEN-BELCT2012070554

PATIENT
  Age: 28 Year
  Sex: Male
  Weight: 68 kg

DRUGS (2)
  1. ETANERCEPT [Suspect]
     Indication: PSORIATIC ARTHROPATHY
     Dosage: 25 mg, 2x/week
     Route: 058
     Dates: start: 20020910, end: 20030201
  2. NAPROSYNE [Concomitant]
     Dosage: UNK
     Route: 048
     Dates: start: 20030207

REACTIONS (1)
  - Bursitis infective staphylococcal [Recovered/Resolved]
